FAERS Safety Report 19697619 (Version 1)
Quarter: 2021Q3

REPORT INFORMATION
  Report Type: Spontaneous
  Country: GB (occurrence: GB)
  Receive Date: 20210813
  Receipt Date: 20210813
  Transmission Date: 20211014
  Serious: Yes (Other)
  Sender: FDA-Public Use
  Company Number: GB-MYLANLABS-2021M1049277

PATIENT
  Age: 22 Year
  Sex: Female
  Weight: 65 kg

DRUGS (2)
  1. CERELLE [Concomitant]
     Active Substance: DESOGESTREL
     Indication: ILL-DEFINED DISORDER
     Dosage: UNK
  2. CANDESARTAN. [Suspect]
     Active Substance: CANDESARTAN
     Indication: HYPERTENSION
     Dosage: 8 MILLIGRAM
     Route: 048
     Dates: start: 20210801, end: 20210803

REACTIONS (2)
  - Confusional state [Recovering/Resolving]
  - Dizziness [Recovering/Resolving]

NARRATIVE: CASE EVENT DATE: 20210802
